FAERS Safety Report 4457136-9 (Version None)
Quarter: 2004Q3

REPORT INFORMATION
  Report Type: 
  Country: None (occurrence: None)
  Receive Date: 20040825
  Receipt Date: 20040520
  Transmission Date: 20050211
  Serious: No
  Sender: FDA-Public Use
  Company Number: 206700

PATIENT
  Age: 42 Year
  Sex: Male
  Weight: 90.7 kg

DRUGS (2)
  1. RAPTIVA [Suspect]
     Indication: PSORIASIS
     Dosage: 0.9 MG  1/WEEK SUBCUTANEOUS
     Route: 058
     Dates: start: 20040213, end: 20040401
  2. INSULIN [Concomitant]

REACTIONS (1)
  - BLOOD GLUCOSE INCREASED [None]
